FAERS Safety Report 16351839 (Version 1)
Quarter: 2019Q3

REPORT INFORMATION
  Report Type: Spontaneous
  Country: US (occurrence: US)
  Receive Date: 20190523
  Receipt Date: 20190523
  Transmission Date: 20191004
  Serious: Yes (Other)
  Sender: FDA-Public Use
  Company Number: None

PATIENT
  Age: 32 Year
  Sex: Female
  Weight: 62.1 kg

DRUGS (2)
  1. JUICE PLUS VITAMINS [Concomitant]
  2. POLY HIST FORTE [Suspect]
     Active Substance: PHENYLEPHRINE HYDROCHLORIDE\PYRILAMINE MALEATE
     Indication: PRODUCT USED FOR UNKNOWN INDICATION
     Route: 061
     Dates: start: 20190509, end: 20190509

REACTIONS (6)
  - Skin reaction [None]
  - Chest pain [None]
  - Peripheral swelling [None]
  - Urticaria [None]
  - Accidental exposure to product [None]
  - Dyspnoea [None]

NARRATIVE: CASE EVENT DATE: 20190509
